FAERS Safety Report 23661861 (Version 1)
Quarter: 2024Q1

REPORT INFORMATION
  Report Type: Spontaneous
  Country: US (occurrence: US)
  Receive Date: 20240322
  Receipt Date: 20240322
  Transmission Date: 20240410
  Serious: No
  Sender: FDA-Public Use
  Company Number: US-ABBVIE-5681775

PATIENT
  Age: 53 Year
  Sex: Male

DRUGS (6)
  1. LUPRON [Suspect]
     Active Substance: LEUPROLIDE ACETATE
     Indication: Neoplasm malignant
     Route: 065
  2. ORGOVYX [Suspect]
     Active Substance: RELUGOLIX
     Indication: Prostate cancer
     Route: 048
     Dates: start: 202209
  3. ORGOVYX [Suspect]
     Active Substance: RELUGOLIX
     Indication: Prostate cancer
     Route: 065
     Dates: start: 202303
  4. PREDNISONE [Concomitant]
     Active Substance: PREDNISONE
     Indication: Product used for unknown indication
     Dates: start: 202305
  5. ABIRATERONE [Concomitant]
     Active Substance: ABIRATERONE
     Indication: Product used for unknown indication
     Dates: start: 202305
  6. COVID-19 vaccine [Concomitant]
     Indication: COVID-19 immunisation
     Dosage: 4 VACCINATIONS
     Route: 030

REACTIONS (13)
  - Poor quality sleep [Not Recovered/Not Resolved]
  - Hot flush [Not Recovered/Not Resolved]
  - Self esteem decreased [Unknown]
  - Fatigue [Not Recovered/Not Resolved]
  - Radiation induced fatigue [Unknown]
  - Quality of life decreased [Recovering/Resolving]
  - Libido decreased [Unknown]
  - Liver function test increased [Recovered/Resolved]
  - COVID-19 [Unknown]
  - Nephrolithiasis [Unknown]
  - Myalgia [Not Recovered/Not Resolved]
  - Asthenia [Unknown]
  - Back pain [Unknown]

NARRATIVE: CASE EVENT DATE: 20221101
